FAERS Safety Report 9426138 (Version 1)
Quarter: 2013Q3

REPORT INFORMATION
  Report Type: Spontaneous
  Country: US (occurrence: US)
  Receive Date: 20130730
  Receipt Date: 20130730
  Transmission Date: 20140515
  Serious: No
  Sender: FDA-Public Use
  Company Number: US-BIOGENIDEC-2013BI069117

PATIENT
  Age: 60 Year
  Sex: Female

DRUGS (2)
  1. TYSABRI [Suspect]
     Indication: MULTIPLE SCLEROSIS
     Route: 042
     Dates: start: 20121203
  2. MIRAPEX [Concomitant]
     Indication: RESTLESS LEGS SYNDROME
     Route: 048
     Dates: start: 2008

REACTIONS (5)
  - Muscle spasms [Not Recovered/Not Resolved]
  - Fatigue [Recovered/Resolved]
  - Blood pressure increased [Recovered/Resolved]
  - Drug effect decreased [Recovered/Resolved]
  - Hypotension [Recovered/Resolved]
